FAERS Safety Report 22941622 (Version 2)
Quarter: 2023Q4

REPORT INFORMATION
  Report Type: Spontaneous
  Country: US (occurrence: US)
  Receive Date: 20230914
  Receipt Date: 20231010
  Transmission Date: 20240109
  Serious: Yes (Hospitalization, Other)
  Sender: FDA-Public Use
  Company Number: US-Blueprint Medicines Corporation-1444

PATIENT
  Sex: Female

DRUGS (1)
  1. AYVAKIT [Suspect]
     Active Substance: AVAPRITINIB
     Indication: Brain neoplasm malignant
     Route: 065
     Dates: start: 20230417

REACTIONS (10)
  - Spinal pain [Unknown]
  - CSF pressure increased [Unknown]
  - Decreased appetite [Unknown]
  - Headache [Recovered/Resolved]
  - Confusional state [Unknown]
  - Somnolence [Unknown]
  - Balance disorder [Unknown]
  - Gait disturbance [Unknown]
  - Dizziness [Unknown]
  - Off label use [Unknown]
